FAERS Safety Report 15057469 (Version 3)
Quarter: 2018Q2

REPORT INFORMATION
  Report Type: Spontaneous
  Country: US (occurrence: US)
  Receive Date: 20180625
  Receipt Date: 20180626
  Transmission Date: 20180711
  Serious: Yes (Other)
  Sender: FDA-Public Use
  Company Number: US-JNJFOC-20180617775

PATIENT
  Age: 63 Year
  Sex: Male
  Weight: 79.38 kg

DRUGS (1)
  1. TYLENOL PM EXTRA STRENGTH [Suspect]
     Active Substance: ACETAMINOPHEN\DIPHENHYDRAMINE HYDROCHLORIDE
     Indication: SLEEP DISORDER THERAPY
     Dosage: 1-2 CAPLETS/ONCE
     Route: 065
     Dates: start: 201806, end: 201806

REACTIONS (4)
  - Toxicity to various agents [Unknown]
  - Rectal haemorrhage [Recovered/Resolved]
  - Expired product administered [Unknown]
  - Product use in unapproved indication [Unknown]

NARRATIVE: CASE EVENT DATE: 201806
